FAERS Safety Report 7734882 (Version 3)
Quarter: 2014Q1

REPORT INFORMATION
  Report Type: Spontaneous
  Country: US (occurrence: US)
  Receive Date: 20101223
  Receipt Date: 20140122
  Transmission Date: 20141002
  Serious: Yes (Other)
  Sender: FDA-Public Use
  Company Number: US-BAYER-2010-003494

PATIENT
  Sex: Female

DRUGS (8)
  1. YAZ [Suspect]
     Indication: PRODUCT USED FOR UNKNOWN INDICATION
  2. YASMIN [Suspect]
     Indication: PRODUCT USED FOR UNKNOWN INDICATION
  3. VALIUM [Concomitant]
  4. TOPOMAX [Concomitant]
  5. MOTRIN [Concomitant]
  6. DOXYCYCLINE [Concomitant]
  7. METFORMIN [Concomitant]
  8. CHANTIX [Concomitant]

REACTIONS (4)
  - Gallbladder disorder [None]
  - Pain [None]
  - Injury [None]
  - Cholecystitis chronic [None]
